FAERS Safety Report 8058031 (Version 2)
Quarter: 2012Q4

REPORT INFORMATION
  Report Type: 
  Country: DE (occurrence: DE)
  Receive Date: 20110728
  Receipt Date: 20121004
  Transmission Date: 20130627
  Serious: Yes (Other)
  Sender: FDA-Public Use
  Company Number: DE-RANBAXY-2011R1-46144

PATIENT
  Age: 15 Year

DRUGS (2)
  1. AMOXICILLIN [Suspect]
     Indication: ALLERGY TEST
     Dosage: UNK
     Route: 065
  2. AMPICILLIN [Suspect]
     Indication: ALLERGY TEST
     Dosage: UNK
     Route: 065

REACTIONS (2)
  - Type IV hypersensitivity reaction [Unknown]
  - Rash [Unknown]
